FAERS Safety Report 25382738 (Version 1)
Quarter: 2025Q2

REPORT INFORMATION
  Report Type: Spontaneous
  Country: US (occurrence: None)
  Receive Date: 20250602
  Receipt Date: 20250602
  Transmission Date: 20250716
  Serious: Yes (Other)
  Sender: Alvotech
  Company Number: US-ALVOTECHPMS-2025-ALVOTECHPMS-004170

PATIENT
  Age: 54 Year
  Sex: Male

DRUGS (1)
  1. USTEKINUMAB [Suspect]
     Active Substance: USTEKINUMAB
     Indication: Psoriasis
     Dosage: THREE DOSES, WHICH TAKEN ONCE EVERY 3 MONTHS

REACTIONS (2)
  - Blindness unilateral [Recovered/Resolved]
  - Pseudopapilloedema [Recovered/Resolved]
